FAERS Safety Report 8707555 (Version 2)
Quarter: 2013Q4

REPORT INFORMATION
  Report Type: Spontaneous
  Country: US (occurrence: US)
  Receive Date: 20120805
  Receipt Date: 20131101
  Transmission Date: 20140711
  Serious: No
  Sender: FDA-Public Use
  Company Number: US-009507513-2012SP036848

PATIENT
  Age: 40 Year
  Sex: Female
  Weight: 65.76 kg

DRUGS (4)
  1. CLARITIN-D-24 [Suspect]
     Indication: SEASONAL ALLERGY
     Dosage: UNK UNK, UNKNOWN
     Route: 048
     Dates: start: 20120327, end: 20120327
  2. GLUMETZA [Concomitant]
     Indication: DIABETES MELLITUS
     Dosage: UNK, UNKNOWN
  3. ZYRTEC [Concomitant]
     Indication: SEASONAL ALLERGY
     Dosage: UNK, UNKNOWN
  4. ZYRTEC [Concomitant]
     Indication: MEDICAL OBSERVATION

REACTIONS (1)
  - Feeling jittery [Recovered/Resolved]
